FAERS Safety Report 8123256-0 (Version None)
Quarter: 2012Q1

REPORT INFORMATION
  Report Type: 
  Country: None (occurrence: None)
  Receive Date: 20120208
  Receipt Date: 20120126
  Transmission Date: 20120608
  Serious: Yes (Hospitalization)
  Sender: FDA-Public Use
  Company Number: HR-MYLANLABS-2012S1002202

PATIENT
  Age: 36 Year
  Sex: Male

DRUGS (4)
  1. PROMAZINE HYDROCHLORIDE [Suspect]
     Indication: AGITATION
     Dosage: 50MG ADMINISTERED INTERMITTENTLY
     Route: 065
  2. DIAZEPAM [Concomitant]
     Indication: AGITATION
     Dosage: 10MG, ADMINISTERED INTERMITTENTLY
     Route: 030
  3. CLOZAPINE [Suspect]
     Indication: MANIA
     Dosage: 200 MG/DAY
     Route: 065
  4. VALPROIC ACID [Suspect]
     Indication: MANIA
     Dosage: 1000 MG PER DAY
     Route: 065

REACTIONS (1)
  - NEUROLEPTIC MALIGNANT SYNDROME [None]
